FAERS Safety Report 18176809 (Version 1)
Quarter: 2020Q3

REPORT INFORMATION
  Report Type: Spontaneous
  Country: CO (occurrence: CO)
  Receive Date: 20200820
  Receipt Date: 20200820
  Transmission Date: 20201103
  Serious: Yes (Other)
  Sender: FDA-Public Use
  Company Number: CO-FRESENIUS KABI-FK202008472

PATIENT
  Age: 18 Year
  Sex: Male

DRUGS (3)
  1. SODIUM CHLORIDE. [Concomitant]
     Active Substance: SODIUM CHLORIDE
     Indication: MEDICATION DILUTION
     Dosage: UNKNOWN
     Route: 065
  2. HALOPERIDOL INJECTION (MANUFACTURER UNKNOWN) [Suspect]
     Active Substance: HALOPERIDOL LACTATE
     Indication: AGITATION
     Route: 042
  3. MIDAZOLAM. [Concomitant]
     Active Substance: MIDAZOLAM
     Indication: AGITATION
     Dosage: ON TWO OCCASSIONS
     Route: 065

REACTIONS (5)
  - Electrolyte imbalance [Recovered/Resolved]
  - Dehydration [Recovered/Resolved]
  - Neuroleptic malignant syndrome [Recovered/Resolved]
  - Hypernatraemia [Recovered/Resolved]
  - Hyperosmolar state [Recovered/Resolved]
